FAERS Safety Report 14728007 (Version 1)
Quarter: 2018Q2

REPORT INFORMATION
  Report Type: Spontaneous
  Country: JP (occurrence: JP)
  Receive Date: 20180406
  Receipt Date: 20180406
  Transmission Date: 20180711
  Serious: Yes (Hospitalization, Other)
  Sender: FDA-Public Use
  Company Number: JP-PFIZER INC-2018134617

PATIENT
  Sex: Male

DRUGS (1)
  1. CHAMPIX [Suspect]
     Active Substance: VARENICLINE TARTRATE
     Indication: SMOKING CESSATION THERAPY
     Dosage: 0.5 MG, ONCE DAILY

REACTIONS (5)
  - Blood pressure increased [Recovering/Resolving]
  - Altered state of consciousness [Unknown]
  - Intentional product misuse [Unknown]
  - Muscle spasms [Unknown]
  - Chest pain [Unknown]
